FAERS Safety Report 7034886-1 (Version None)
Quarter: 2010Q4

REPORT INFORMATION
  Report Type: 
  Country: None (occurrence: None)
  Receive Date: 20101008
  Receipt Date: 20100924
  Transmission Date: 20110411
  Serious: No
  Sender: FDA-Public Use
  Company Number: US-PFIZER INC-2010122727

PATIENT
  Sex: Female
  Weight: 118 kg

DRUGS (1)
  1. NEURONTIN [Suspect]
     Indication: NEUROPATHY PERIPHERAL
     Dosage: 600 MG, UNK (10 TABLETS)
     Route: 048
     Dates: start: 20010101

REACTIONS (2)
  - DRUG INEFFECTIVE [None]
  - PAIN [None]
